FAERS Safety Report 5051964-7 (Version None)
Quarter: 2006Q3

REPORT INFORMATION
  Report Type: 
  Country: None (occurrence: None)
  Receive Date: 20060710
  Receipt Date: 20060629
  Transmission Date: 20061208
  Serious: Yes (Other)
  Sender: FDA-Public Use
  Company Number: 2006082429

PATIENT
  Sex: Female

DRUGS (1)
  1. SUDAFED PE SINUS HEADACHE CAPLET (ACETMINOPHEN, PHENYLEPHRINE HYDROCHL [Suspect]
     Dosage: ORAL
     Route: 048
     Dates: start: 20060628

REACTIONS (3)
  - MUSCLE SPASMS [None]
  - POLLAKIURIA [None]
  - RECTAL HAEMORRHAGE [None]
